FAERS Safety Report 7405276-4 (Version None)
Quarter: 2011Q2

REPORT INFORMATION
  Report Type: 
  Country: None (occurrence: None)
  Receive Date: 20110404
  Receipt Date: 20110325
  Transmission Date: 20111010
  Serious: Yes (Other)
  Sender: FDA-Public Use
  Company Number: CL-306-2011

PATIENT
  Age: 76 Year
  Sex: Female

DRUGS (1)
  1. FLUCONAZOLE [Suspect]
     Indication: COCCIDIOIDOMYCOSIS

REACTIONS (2)
  - RETINAL TOXICITY [None]
  - CYSTOID MACULAR OEDEMA [None]
